FAERS Safety Report 20033307 (Version 1)
Quarter: 2021Q4

REPORT INFORMATION
  Report Type: Spontaneous
  Country: None (occurrence: IL)
  Receive Date: 20211104
  Receipt Date: 20211104
  Transmission Date: 20220303
  Serious: Yes (Other)
  Sender: FDA-Public Use
  Company Number: IL-Y-mAbs Therapeutics-2121456

PATIENT
  Sex: Female

DRUGS (5)
  1. DANYELZA [Suspect]
     Active Substance: NAXITAMAB-GQGK
     Indication: Neuroblastoma recurrent
     Route: 042
  2. ALLERGY RELIEF ANTIHISTAMINE [Concomitant]
     Active Substance: DIPHENHYDRAMINE HYDROCHLORIDE
  3. ADRENALIN [Concomitant]
     Active Substance: EPINEPHRINE
  4. UNSPECIFIED INGREDIENT [Concomitant]
     Active Substance: UNSPECIFIED INGREDIENT
  5. METAMIZOLE [Concomitant]
     Active Substance: METAMIZOLE

REACTIONS (10)
  - Urticaria [Unknown]
  - Rash [Recovered/Resolved with Sequelae]
  - Blood pressure decreased [Recovered/Resolved]
  - Rash [Recovered/Resolved]
  - Blood pressure decreased [Recovered/Resolved with Sequelae]
  - Oxygen saturation decreased [Unknown]
  - Abdominal pain [Unknown]
  - Amylase increased [Unknown]
  - Blood pressure decreased [Unknown]
  - Off label use [Unknown]
